FAERS Safety Report 23956970 (Version 4)
Quarter: 2024Q3

REPORT INFORMATION
  Report Type: Report from Study
  Country: CA (occurrence: CA)
  Receive Date: 20240610
  Receipt Date: 20240701
  Transmission Date: 20241017
  Serious: Yes (Other)
  Sender: PFIZER
  Company Number: CA-PFIZER INC-202400185579

PATIENT
  Age: 59 Year
  Sex: Female

DRUGS (16)
  1. ADALIMUMAB [Suspect]
     Active Substance: ADALIMUMAB\ISOPROPYL ALCOHOL
     Indication: Rheumatoid arthritis
     Dosage: 40 MG, EVERY 2 WEEKS
     Route: 058
  2. ADALIMUMAB [Suspect]
     Active Substance: ADALIMUMAB\ISOPROPYL ALCOHOL
     Indication: Rheumatoid arthritis
     Dosage: 40 MG, EVERY 2 WEEKS
     Route: 058
  3. BILASTINE [Concomitant]
     Active Substance: BILASTINE
     Indication: Hypersensitivity
  4. COVID-19 VACCINE [Concomitant]
  5. FOLIC ACID [Concomitant]
     Active Substance: FOLIC ACID
  6. HYDROXYCHLOROQUINE SULFATE [Concomitant]
     Active Substance: HYDROXYCHLOROQUINE SULFATE
     Dosage: UNK
  7. HYDROXYCHLOROQUINE SULFATE [Concomitant]
     Active Substance: HYDROXYCHLOROQUINE SULFATE
     Dosage: UNK
  8. MOMETASONE FUROATE MONOHYDRATE/OLOPATADINE HYDROCHLORIDE [Concomitant]
     Indication: Sinus disorder
  9. MOMETASONE FUROATE MONOHYDRATE/OLOPATADINE HYDROCHLORIDE [Concomitant]
     Indication: Hypersensitivity
  10. MOMETASONE FUROATE MONOHYDRATE/OLOPATADINE HYDROCHLORIDE [Concomitant]
     Indication: Sinus disorder
  11. MOMETASONE FUROATE MONOHYDRATE/OLOPATADINE HYDROCHLORIDE [Concomitant]
     Indication: Hypersensitivity
  12. MONTELUKAST [Concomitant]
     Active Substance: MONTELUKAST SODIUM
     Indication: Hypersensitivity
  13. NAPROXEN [Concomitant]
     Active Substance: NAPROXEN
  14. PANTOPRAZOLE SODIUM ANHYDROUS [Concomitant]
     Active Substance: PANTOPRAZOLE SODIUM ANHYDROUS
  15. TYLENOL ARTHRITIS PAIN [Concomitant]
     Active Substance: ACETAMINOPHEN
  16. VITAMIN D NOS [Concomitant]
     Active Substance: CHOLECALCIFEROL\ERGOCALCIFEROL

REACTIONS (14)
  - Accidental exposure to product [Recovered/Resolved]
  - Exposure via skin contact [Recovered/Resolved]
  - Butterfly rash [Recovered/Resolved]
  - Exposure to SARS-CoV-2 [Recovered/Resolved]
  - Fatigue [Recovered/Resolved]
  - Intentional dose omission [Recovered/Resolved]
  - Pollakiuria [Recovered/Resolved]
  - Pruritus [Recovered/Resolved]
  - Rash [Recovered/Resolved]
  - Swelling face [Recovered/Resolved]
  - Systemic lupus erythematosus [Recovered/Resolved]
  - Urinary tract infection [Recovered/Resolved]
  - Gastroenteritis listeria [Unknown]
  - Immunodeficiency [Unknown]
